FAERS Safety Report 22619244 (Version 1)
Quarter: 2023Q2

REPORT INFORMATION
  Report Type: Spontaneous
  Country: US (occurrence: US)
  Receive Date: 20230620
  Receipt Date: 20230620
  Transmission Date: 20230722
  Serious: No
  Sender: FDA-Public Use
  Company Number: US-AUROBINDO-AUR-APL-2023-032518

PATIENT
  Age: 69 Year
  Sex: Male
  Weight: 71 kg

DRUGS (1)
  1. ZOLPIDEM TARTRATE [Suspect]
     Active Substance: ZOLPIDEM TARTRATE
     Indication: Insomnia
     Dosage: UNK, TWO TIMES A DAY(HALF PILL IN MORNING AND HALF PILL AT NIGHT)
     Route: 065
     Dates: end: 20230417

REACTIONS (2)
  - Drug ineffective [Unknown]
  - Expired product administered [Unknown]
